FAERS Safety Report 8958565 (Version 1)
Quarter: 2012Q4

REPORT INFORMATION
  Report Type: Spontaneous
  Country: US (occurrence: None)
  Receive Date: 20121207
  Receipt Date: 20121207
  Transmission Date: 20130627
  Serious: Yes (Other)
  Sender: FDA-Public Use
  Company Number: None

PATIENT
  Sex: Male
  Weight: 115.67 kg

DRUGS (2)
  1. NITRO-DUR [Suspect]
     Indication: ANGINA PECTORIS
     Dosage: 1 patch QAM topical
     Route: 061
     Dates: start: 1998
  2. NITRO-DUR [Suspect]
     Indication: CORONARY ARTERY DISEASE
     Dosage: 1 patch QAM topical
     Route: 061
     Dates: start: 1998

REACTIONS (1)
  - Rash [None]
